FAERS Safety Report 6834261-6 (Version None)
Quarter: 2010Q3

REPORT INFORMATION
  Report Type: 
  Country: None (occurrence: None)
  Receive Date: 20100712
  Receipt Date: 20070419
  Transmission Date: 20110219
  Serious: No
  Sender: FDA-Public Use
  Company Number: US-PFIZER INC-2007032870

PATIENT
  Sex: Female
  Weight: 105 kg

DRUGS (6)
  1. CHANTIX [Suspect]
     Indication: SMOKING CESSATION THERAPY
     Dates: start: 20070301
  2. POTASSIUM CHLORIDE [Concomitant]
     Indication: FLUID RETENTION
  3. LEVOTHROID [Concomitant]
  4. MONTELUKAST SODIUM [Concomitant]
  5. BUMETANIDE [Concomitant]
     Indication: FLUID RETENTION
  6. MAGNESIUM [Concomitant]
     Indication: FLUID RETENTION

REACTIONS (3)
  - COGNITIVE DISORDER [None]
  - FATIGUE [None]
  - INSOMNIA [None]
